FAERS Safety Report 8806591 (Version 1)
Quarter: 2012Q4

REPORT INFORMATION
  Report Type: Spontaneous
  Country: AN (occurrence: None)
  Receive Date: 20120919
  Receipt Date: 20120919
  Transmission Date: 20130627
  Serious: Yes (Life-Threatening, Other)
  Sender: FDA-Public Use
  Company Number: THQ2012A08252

PATIENT
  Age: 72 Year
  Sex: Male

DRUGS (4)
  1. ACTOS (PIOGLITAZONE HYDROCHLORIDE) [Suspect]
     Route: 048
     Dates: start: 20060324, end: 201107
  2. GLIMEPIRIDE [Concomitant]
  3. AMLODIPINE MALEATE [Concomitant]
  4. INDAPAMIDE, PERINDOPRIL [Concomitant]

REACTIONS (1)
  - Adenocarcinoma gastric [None]
